FAERS Safety Report 24209743 (Version 1)
Quarter: 2024Q3

REPORT INFORMATION
  Report Type: Spontaneous
  Country: CN (occurrence: CN)
  Receive Date: 20240814
  Receipt Date: 20240814
  Transmission Date: 20241016
  Serious: Yes (Hospitalization)
  Sender: PFIZER
  Company Number: CN-PFIZER INC-PV202400104877

PATIENT
  Age: 60 Year
  Sex: Female
  Weight: 57 kg

DRUGS (2)
  1. LORLATINIB [Suspect]
     Active Substance: LORLATINIB
     Indication: Lung neoplasm
     Dosage: 100 MG, 1X/DAY
     Route: 048
     Dates: start: 20240701, end: 20240729
  2. LORLATINIB [Suspect]
     Active Substance: LORLATINIB
     Indication: Metastases to bone

REACTIONS (3)
  - Type 2 diabetes mellitus [Recovering/Resolving]
  - Blood glucose increased [Recovering/Resolving]
  - Platelet count decreased [Recovering/Resolving]

NARRATIVE: CASE EVENT DATE: 20240727
